FAERS Safety Report 24206144 (Version 1)
Quarter: 2024Q3

REPORT INFORMATION
  Report Type: Report from Study
  Country: US (occurrence: None)
  Receive Date: 20240813
  Receipt Date: 20240813
  Transmission Date: 20241017
  Serious: Yes (Other)
  Sender: ASTRAZENECA
  Company Number: 2024A182003

PATIENT
  Sex: Female

DRUGS (6)
  1. FASENRA [Suspect]
     Active Substance: BENRALIZUMAB
     Indication: Asthma
     Dosage: INJECT 30 MG SUBCUTANEOUSLY EVERY 8 WEEKS30MG/ML EVERY EIGHT WEEKS
     Route: 058
  2. BREZTRI [Suspect]
     Active Substance: BUDESONIDE\FORMOTEROL\GLYCOPYRROLATE
     Route: 055
  3. AMOXICILLIN [Concomitant]
     Active Substance: AMOXICILLIN
     Dosage: 875 MG
  4. FUROSEMIDE [Concomitant]
     Active Substance: FUROSEMIDE
  5. PROBIOTICS NOS [Concomitant]
     Active Substance: PROBIOTICS NOS
  6. VITAMIN D [Concomitant]
     Active Substance: VITAMIN D NOS
     Dosage: LIQ 10UG/ML

REACTIONS (4)
  - Tooth fracture [Not Recovered/Not Resolved]
  - Asthma [Unknown]
  - Urticaria [Not Recovered/Not Resolved]
  - Incorrect dose administered [Not Recovered/Not Resolved]
